FAERS Safety Report 15610668 (Version 2)
Quarter: 2019Q4

REPORT INFORMATION
  Report Type: Spontaneous
  Country: US (occurrence: US)
  Receive Date: 20181113
  Receipt Date: 20191104
  Transmission Date: 20200122
  Serious: No
  Sender: FDA-Public Use
  Company Number: US-ROCHE-2147416

PATIENT
  Sex: Male
  Weight: 51.3 kg

DRUGS (5)
  1. VANCOMYCIN [Concomitant]
     Active Substance: VANCOMYCIN
     Dosage: ONGOING: UNKNOWN
     Route: 042
     Dates: start: 20170509
  2. PULMOZYME [Suspect]
     Active Substance: DORNASE ALFA
     Indication: CYSTIC FIBROSIS
     Dosage: ONGOING: UNKNOWN
     Route: 050
     Dates: start: 20170511
  3. CHOLESTIN [Concomitant]
     Dosage: ONGOING: UNKNOWN
     Route: 048
     Dates: start: 20170509
  4. ESOMEPRAZOLE. [Concomitant]
     Active Substance: ESOMEPRAZOLE MAGNESIUM
     Dosage: ONGOING: UNKNOWN
     Route: 048
     Dates: start: 20170509
  5. ORKAMBI [Concomitant]
     Active Substance: IVACAFTOR\LUMACAFTOR
     Dosage: ONGOING: UNKNOWN
     Route: 048
     Dates: start: 20170509

REACTIONS (2)
  - No adverse event [Unknown]
  - Product dose omission [Unknown]
